FAERS Safety Report 5942605-2 (Version None)
Quarter: 2008Q4

REPORT INFORMATION
  Report Type: 
  Country: None (occurrence: None)
  Receive Date: 20081103
  Receipt Date: 20081021
  Transmission Date: 20090506
  Serious: Yes (Death, Life-Threatening, Other)
  Sender: FDA-Public Use
  Company Number: 2008US001657

PATIENT
  Age: 63 Year
  Sex: Male

DRUGS (7)
  1. AMBISOME [Suspect]
     Indication: MUCORMYCOSIS
     Dosage: 200 MG, UID/QD, IV NOS
     Route: 042
     Dates: start: 20080522
  2. MEROPEN (MEROPENEM TRIHYDRATE) [Concomitant]
  3. PREDONINE (PREDNISOLONE SODIUM SUCCINATE) [Concomitant]
  4. MUCOSYNE (CARBOCISTEINE) [Concomitant]
  5. MUCOSTA (REBAMIPIDE) [Concomitant]
  6. MOBIC [Concomitant]
  7. FOSAMAC (ALENDRONATE SODIUM) [Concomitant]

REACTIONS (3)
  - BONE MARROW FAILURE [None]
  - HYPOKALAEMIA [None]
  - PLATELET COUNT DECREASED [None]
